FAERS Safety Report 9948327 (Version 2)
Quarter: 2014Q1

REPORT INFORMATION
  Report Type: Report from Study
  Country: US (occurrence: US)
  Receive Date: 20140303
  Receipt Date: 20140303
  Transmission Date: 20141002
  Serious: No
  Sender: FDA-Public Use
  Company Number: US-ABBVIE-13P-163-1050900-00

PATIENT
  Age: 65 Year
  Sex: Female

DRUGS (16)
  1. HUMIRA [Suspect]
     Indication: CROHN^S DISEASE
     Route: 058
     Dates: start: 20130125, end: 20130125
  2. HUMIRA [Suspect]
     Dates: start: 20130126, end: 20130126
  3. HUMIRA [Suspect]
     Dates: start: 20130208
  4. KEFLEX [Concomitant]
     Indication: URINARY TRACT INFECTION
     Dates: start: 20130221, end: 20130228
  5. PENTASA [Concomitant]
     Indication: CROHN^S DISEASE
  6. PROPRANOLOL [Concomitant]
     Indication: MIGRAINE PROPHYLAXIS
  7. AMITRIPTYLINE [Concomitant]
     Indication: MIGRAINE PROPHYLAXIS
  8. SIMVASTATIN [Concomitant]
     Indication: BLOOD CHOLESTEROL INCREASED
  9. CELEXA [Concomitant]
     Indication: DEPRESSION
  10. LEVOTHYROXINE [Concomitant]
     Indication: HYPOTHYROIDISM
  11. OMEPRAZOLE [Concomitant]
     Indication: GASTROINTESTINAL DISORDER
  12. D3 [Concomitant]
     Indication: VITAMIN D DECREASED
  13. PROBIOTICS [Concomitant]
     Indication: NUTRITIONAL SUPPLEMENTATION
  14. FISH OIL [Concomitant]
     Indication: NUTRITIONAL SUPPLEMENTATION
  15. FOOD ENYZMES AND CALCIUM [Concomitant]
     Indication: NUTRITIONAL SUPPLEMENTATION
  16. CHROMIUM PICOLINATE [Concomitant]
     Indication: NUTRITIONAL SUPPLEMENTATION

REACTIONS (8)
  - Hyperhidrosis [Not Recovered/Not Resolved]
  - Nausea [Not Recovered/Not Resolved]
  - Abdominal pain [Not Recovered/Not Resolved]
  - Drug ineffective [Not Recovered/Not Resolved]
  - Fatigue [Not Recovered/Not Resolved]
  - Musculoskeletal stiffness [Not Recovered/Not Resolved]
  - Groin pain [Not Recovered/Not Resolved]
  - Urinary tract infection [Unknown]
